FAERS Safety Report 15352430 (Version 1)
Quarter: 2018Q3

REPORT INFORMATION
  Report Type: Spontaneous
  Country: DE (occurrence: DE)
  Receive Date: 20180905
  Receipt Date: 20180905
  Transmission Date: 20181010
  Serious: Yes (Other)
  Sender: FDA-Public Use
  Company Number: DE-GLAXOSMITHKLINE-DE2018154658

PATIENT
  Sex: Female
  Weight: 3 kg

DRUGS (3)
  1. BUPROPION. [Suspect]
     Active Substance: BUPROPION
     Indication: PRODUCT USED FOR UNKNOWN INDICATION
     Dosage: 150 [MG/D ]/ DOSAGE REDUCED TO 150MG THREE DAYS PER WEEK, 3. TRIMESTER
     Route: 064
  2. BISOHEXAL [Concomitant]
     Active Substance: BISOPROLOL FUMARATE
     Indication: PRODUCT USED FOR UNKNOWN INDICATION
     Dosage: 2.5 [MG/D (?1.25) ]/ DOSAGE REDUCED TO 1.25 MG/D, UNKNOWN WHEN, UNKNOWN HOW LONG
     Route: 064
     Dates: start: 20170331, end: 20170814
  3. MAGNETRANS [Concomitant]
     Indication: MUSCLE TIGHTNESS
     Dosage: 150 [MG/D ]/ IF REQUIRED
     Route: 064

REACTIONS (2)
  - Myoclonus [Unknown]
  - Foetal exposure during pregnancy [Unknown]
